FAERS Safety Report 8411788-7 (Version None)
Quarter: 2012Q2

REPORT INFORMATION
  Report Type: 
  Country: None (occurrence: None)
  Receive Date: 20120605
  Receipt Date: 20120515
  Transmission Date: 20120825
  Serious: No
  Sender: FDA-Public Use
  Company Number: US-BAYER-2012-052305

PATIENT
  Sex: Female

DRUGS (4)
  1. IBUPROFEN (ADVIL) [Concomitant]
  2. TYNOL [Concomitant]
  3. IBUPROFEN [Concomitant]
  4. ALEVE (CAPLET) [Suspect]
     Indication: HEADACHE
     Route: 048

REACTIONS (1)
  - HEADACHE [None]
